FAERS Safety Report 12510516 (Version 1)
Quarter: 2016Q2

REPORT INFORMATION
  Report Type: Spontaneous
  Country: GR (occurrence: GR)
  Receive Date: 20160629
  Receipt Date: 20160629
  Transmission Date: 20160815
  Serious: Yes (Hospitalization, Other)
  Sender: FDA-Public Use
  Company Number: GR-009507513-1405GRC008320

PATIENT
  Age: 78 Year
  Sex: Female
  Weight: 84 kg

DRUGS (8)
  1. GLUCOPHAGE [Suspect]
     Active Substance: METFORMIN HYDROCHLORIDE
     Dosage: 1000 MG, QPM
  2. MEDROL [Concomitant]
     Active Substance: METHYLPREDNISOLONE
  3. APROVEL [Concomitant]
     Active Substance: IRBESARTAN
     Dosage: 1X1
  4. SOLOSA [Suspect]
     Active Substance: GLIMEPIRIDE
     Dosage: 1/2 TABLET AT NOON
  5. ANCORON [Concomitant]
     Active Substance: AMIODARONE HYDROCHLORIDE
     Dosage: 1X1
  6. JANUMET [Suspect]
     Active Substance: METFORMIN HYDROCHLORIDE\SITAGLIPTIN PHOSPHATE
     Indication: TYPE 2 DIABETES MELLITUS
     Dosage: 1 DF, QAM
     Route: 048
     Dates: start: 2007
  7. LOPRESSOR [Concomitant]
     Active Substance: METOPROLOL TARTRATE
     Indication: HEART VALVE OPERATION
     Dosage: 1/2 LOPRESOR
     Dates: start: 2011
  8. LASIX [Concomitant]
     Active Substance: FUROSEMIDE
     Dosage: 2 AT MORNING - 1 AT NIGHT

REACTIONS (9)
  - Respiratory tract infection [Unknown]
  - Increased appetite [Recovered/Resolved]
  - Cardiovascular disorder [Unknown]
  - Haematocrit abnormal [Unknown]
  - Renal disorder [Unknown]
  - Blood glucose increased [Unknown]
  - Dyspepsia [Unknown]
  - Inappropriate schedule of drug administration [Unknown]
  - Hypoglycaemia [Recovered/Resolved]

NARRATIVE: CASE EVENT DATE: 2007
